FAERS Safety Report 9560508 (Version 1)
Quarter: 2013Q3

REPORT INFORMATION
  Report Type: Spontaneous
  Country: US (occurrence: US)
  Receive Date: 20130927
  Receipt Date: 20130927
  Transmission Date: 20140515
  Serious: No
  Sender: FDA-Public Use
  Company Number: US-BIOGENIDEC-2013BI051872

PATIENT
  Age: 49 Year
  Sex: Female

DRUGS (10)
  1. TECFIDERA [Suspect]
     Indication: MULTIPLE SCLEROSIS
     Route: 048
     Dates: start: 20130513, end: 20130519
  2. TECFIDERA [Suspect]
     Indication: MULTIPLE SCLEROSIS
     Route: 048
     Dates: start: 20130520
  3. EFFEXOR XR [Concomitant]
  4. ZOLPIDEM TARTRATE [Concomitant]
  5. PRAVASTATIN SODIUM [Concomitant]
  6. PROMETHAZINE [Concomitant]
  7. OXYCODONE-ACETAMINOPHEN [Concomitant]
  8. CELEXA [Concomitant]
  9. VITAMIN D3 [Concomitant]
  10. CARISOPRODOL [Concomitant]

REACTIONS (12)
  - Fatigue [Unknown]
  - Decreased appetite [Unknown]
  - Alopecia [Unknown]
  - Flushing [Unknown]
  - Nausea [Unknown]
  - Rash pustular [Unknown]
  - Diarrhoea [Unknown]
  - Pruritus [Unknown]
  - Skin discolouration [Not Recovered/Not Resolved]
  - Hypoaesthesia [Not Recovered/Not Resolved]
  - Rash [Unknown]
  - Upper extremity mass [Unknown]
